FAERS Safety Report 14151501 (Version 1)
Quarter: 2017Q4

REPORT INFORMATION
  Report Type: Spontaneous
  Country: US (occurrence: US)
  Receive Date: 20171102
  Receipt Date: 20171102
  Transmission Date: 20180321
  Serious: No
  Sender: FDA-Public Use
  Company Number: US-PFIZER INC-2017130739

PATIENT
  Age: 56 Year
  Sex: Female
  Weight: 133.8 kg

DRUGS (2)
  1. SERTRALINE HCL [Suspect]
     Active Substance: SERTRALINE HYDROCHLORIDE
     Indication: MIGRAINE
     Dosage: UNK
  2. SERTRALINE HCL [Suspect]
     Active Substance: SERTRALINE HYDROCHLORIDE
     Indication: DEPRESSION

REACTIONS (6)
  - Migraine [Unknown]
  - Condition aggravated [Unknown]
  - Personality change [Unknown]
  - Emotional disorder [Unknown]
  - Obsessive-compulsive disorder [Unknown]
  - Feeling abnormal [Unknown]
